APPROVED DRUG PRODUCT: CALCIBIND
Active Ingredient: CELLULOSE SODIUM PHOSPHATE
Strength: 300GM/BOT
Dosage Form/Route: POWDER;ORAL
Application: N018757 | Product #003
Applicant: MISSION PHARMACAL CO
Approved: Oct 16, 1984 | RLD: No | RS: No | Type: DISCN